FAERS Safety Report 14530315 (Version 1)
Quarter: 2018Q1

REPORT INFORMATION
  Report Type: Spontaneous
  Country: US (occurrence: US)
  Receive Date: 20180214
  Receipt Date: 20180214
  Transmission Date: 20180509
  Serious: No
  Sender: FDA-Public Use
  Company Number: US-GLAXOSMITHKLINE-US2018022167

PATIENT
  Age: 89 Year
  Sex: Male

DRUGS (1)
  1. VOLTAREN [Suspect]
     Active Substance: DICLOFENAC SODIUM
     Indication: ARTHRITIS
     Dosage: UNK, BID
     Route: 061
     Dates: start: 20171204

REACTIONS (3)
  - Drug ineffective [Unknown]
  - Underdose [Unknown]
  - Inappropriate schedule of drug administration [Unknown]
